FAERS Safety Report 8372132-7 (Version None)
Quarter: 2012Q2

REPORT INFORMATION
  Report Type: 
  Country: None (occurrence: None)
  Receive Date: 20120521
  Receipt Date: 20120507
  Transmission Date: 20120825
  Serious: Yes (Other)
  Sender: FDA-Public Use
  Company Number: DE-AMGEN-DEUSP2012025982

PATIENT
  Age: 46 Year
  Sex: Male
  Weight: 85 kg

DRUGS (3)
  1. RANTUDIL [Concomitant]
     Indication: PAIN
     Dosage: 90 MG, UNK
     Route: 048
  2. FLUPIRTINE MALEATE [Concomitant]
     Indication: PAIN
     Dosage: UNK
     Route: 048
     Dates: start: 20110201, end: 20120423
  3. ENBREL [Suspect]
     Indication: ANKYLOSING SPONDYLITIS
     Dosage: 50 MG, WEEKLY
     Route: 058
     Dates: start: 20120322, end: 20120423

REACTIONS (5)
  - CHEST DISCOMFORT [None]
  - TRANSAMINASES INCREASED [None]
  - INJECTION SITE ERYTHEMA [None]
  - TREMOR [None]
  - DYSPNOEA [None]
